FAERS Safety Report 21360472 (Version 3)
Quarter: 2023Q1

REPORT INFORMATION
  Report Type: Report from Study
  Country: AR (occurrence: None)
  Receive Date: 20220921
  Receipt Date: 20230117
  Transmission Date: 20230417
  Serious: Yes (Death, Hospitalization)
  Sender: FDA-Public Use
  Company Number: AR-ROCHE-3028273

PATIENT
  Age: 67 Year
  Sex: Male
  Weight: 48 kg

DRUGS (26)
  1. ATEZOLIZUMAB [Suspect]
     Active Substance: ATEZOLIZUMAB
     Indication: Hormone-refractory prostate cancer
     Dosage: RECEIVED SUBSEQUENT DOSE ON 04/AUG/2021, 25/AUG/2021, 06/OCT/2021, 27/OCT/2021, 17/NOV/2021, 07/DEC/
     Route: 041
     Dates: start: 20210714
  2. CABOZANTINIB [Suspect]
     Active Substance: CABOZANTINIB
     Indication: Hormone-refractory prostate cancer
     Dosage: ON 07/AUG/2021, HE HAD SUBSEQUENT DOSE OF XL184.
     Route: 048
     Dates: start: 20210714, end: 20210804
  3. CABOZANTINIB [Suspect]
     Active Substance: CABOZANTINIB
     Route: 048
     Dates: start: 20210807, end: 20211207
  4. CABOZANTINIB [Suspect]
     Active Substance: CABOZANTINIB
     Route: 048
     Dates: start: 20211208, end: 20220117
  5. ACEMUK [Concomitant]
     Dates: start: 20220119, end: 20220126
  6. AMBROXOL [Concomitant]
     Active Substance: AMBROXOL
     Dates: start: 20220119, end: 20220125
  7. AMPICILLIN SODIUM\SULBACTAM SODIUM [Concomitant]
     Active Substance: AMPICILLIN SODIUM\SULBACTAM SODIUM
     Dates: start: 20220118, end: 20220126
  8. BUDESONIDE [Concomitant]
     Active Substance: BUDESONIDE
     Dates: start: 20220118, end: 20220125
  9. CLARITHROMYCIN [Concomitant]
     Active Substance: CLARITHROMYCIN
     Dates: start: 20220118, end: 20220126
  10. DEXAMETHASONE [Concomitant]
     Active Substance: DEXAMETHASONE
     Dates: start: 20220119, end: 20220125
  11. DEXTROSE [Concomitant]
     Active Substance: DEXTROSE
     Dates: start: 20220118, end: 20220119
  12. HEPARIN [Concomitant]
     Active Substance: HEPARIN SODIUM
     Dates: start: 20220118, end: 20220125
  13. HYDROCORTISONE [Concomitant]
     Active Substance: HYDROCORTISONE
     Dates: start: 20220118, end: 20220118
  14. SCOPOLAMINE [Concomitant]
     Active Substance: SCOPOLAMINE
     Dates: start: 20220118, end: 20220118
  15. LEUPROLIDE [Concomitant]
     Active Substance: LEUPROLIDE
     Dates: start: 20181201
  16. OMEPRAZOLE [Concomitant]
     Active Substance: OMEPRAZOLE
     Dates: start: 20210422
  17. ACETAMINOPHEN [Concomitant]
     Active Substance: ACETAMINOPHEN
     Dates: start: 20210422
  18. POTASSIUM [Concomitant]
     Active Substance: POTASSIUM
     Dates: start: 20220119, end: 20220125
  19. PREGABALIN [Concomitant]
     Active Substance: PREGABALIN
     Dates: start: 20210422, end: 20220118
  20. RANITIDINE [Concomitant]
     Active Substance: RANITIDINE
     Dates: start: 20220118, end: 20220126
  21. ALBUTEROL [Concomitant]
     Active Substance: ALBUTEROL
     Dates: start: 20220118, end: 20220125
  22. SALINE [Concomitant]
     Active Substance: SODIUM CHLORIDE
     Dates: start: 20220118, end: 20220126
  23. SODIUM PICOSULFATE [Concomitant]
     Active Substance: SODIUM PICOSULFATE
     Dates: start: 20210422, end: 20220118
  24. TRAMADOL [Concomitant]
     Active Substance: TRAMADOL
     Dates: start: 20210422, end: 20220118
  25. SOLIFENACIN SUCCINATE;TAMSULOSIN HYDROCHLORIDE [Concomitant]
     Dates: start: 20211111, end: 20220118
  26. FUROSEMIDE [Concomitant]
     Active Substance: FUROSEMIDE

REACTIONS (3)
  - Urinary retention [Recovered/Resolved]
  - Vomiting [Recovered/Resolved]
  - Respiratory distress [Fatal]

NARRATIVE: CASE EVENT DATE: 20220207
